FAERS Safety Report 15620061 (Version 1)
Quarter: 2018Q4

REPORT INFORMATION
  Report Type: Spontaneous
  Country: IT (occurrence: IT)
  Receive Date: 20181115
  Receipt Date: 20181115
  Transmission Date: 20190205
  Serious: Yes (Other)
  Sender: FDA-Public Use
  Company Number: IT-ACCORD-092498

PATIENT
  Age: 66 Year
  Sex: Female

DRUGS (7)
  1. PERINDOPRIL/PERINDOPRIL ERBUMINE [Concomitant]
  2. ALENDRONATE SODIUM/ALENDRONIC ACID [Concomitant]
  3. METHOTREXATE. [Suspect]
     Active Substance: METHOTREXATE
     Indication: RHEUMATOID ARTHRITIS
     Route: 030
     Dates: start: 20130716
  4. LYRICA [Concomitant]
     Active Substance: PREGABALIN
  5. LANSOPRAZOLE. [Concomitant]
     Active Substance: LANSOPRAZOLE
  6. DIBASE [Concomitant]
     Active Substance: CHOLECALCIFEROL
  7. MEDROL [Concomitant]
     Active Substance: METHYLPREDNISOLONE

REACTIONS (2)
  - Lung disorder [Recovering/Resolving]
  - Dyspnoea [Recovering/Resolving]

NARRATIVE: CASE EVENT DATE: 20171212
